FAERS Safety Report 8265503-0 (Version None)
Quarter: 2012Q2

REPORT INFORMATION
  Report Type: 
  Country: None (occurrence: None)
  Receive Date: 20120406
  Receipt Date: 20120402
  Transmission Date: 20120825
  Serious: Yes (Other)
  Sender: FDA-Public Use
  Company Number: US-PFIZER INC-2012083589

PATIENT
  Sex: Male
  Weight: 113.4 kg

DRUGS (3)
  1. XANAX [Concomitant]
     Dosage: UNK
  2. LYRICA [Suspect]
     Indication: SCIATICA
     Dosage: 100 MG, 3X/DAY
     Route: 048
  3. LYRICA [Suspect]
     Indication: FIBROMYALGIA

REACTIONS (9)
  - DRUG INEFFECTIVE [None]
  - PAIN [None]
  - WITHDRAWAL SYNDROME [None]
  - ARTHRALGIA [None]
  - SEXUAL DYSFUNCTION [None]
  - DISCOMFORT [None]
  - PAIN IN EXTREMITY [None]
  - URINARY INCONTINENCE [None]
  - BLADDER DISORDER [None]
